APPROVED DRUG PRODUCT: CINACALCET HYDROCHLORIDE
Active Ingredient: CINACALCET HYDROCHLORIDE
Strength: EQ 90MG BASE
Dosage Form/Route: TABLET;ORAL
Application: A210570 | Product #003 | TE Code: AB
Applicant: ALKEM LABORATORIES LTD
Approved: May 17, 2019 | RLD: No | RS: No | Type: RX